FAERS Safety Report 9485781 (Version 1)
Quarter: 2013Q3

REPORT INFORMATION
  Report Type: Spontaneous
  Country: US (occurrence: None)
  Receive Date: 20130827
  Receipt Date: 20130827
  Transmission Date: 20140515
  Serious: Yes (Hospitalization)
  Sender: FDA-Public Use
  Company Number: None

PATIENT
  Age: 66 Year
  Sex: Male
  Weight: 107.1 kg

DRUGS (1)
  1. LINEZOLID [Suspect]
     Indication: INFECTION
     Route: 048
     Dates: start: 20130319, end: 20130402

REACTIONS (1)
  - Thrombocytopenia [None]
